FAERS Safety Report 10910910 (Version 1)
Quarter: 2015Q1

REPORT INFORMATION
  Report Type: Spontaneous
  Country: TR (occurrence: TR)
  Receive Date: 20150312
  Receipt Date: 20150312
  Transmission Date: 20150721
  Serious: Yes (Other)
  Sender: FDA-Public Use
  Company Number: TR-009507513-1503TUR001931

PATIENT
  Age: 55 Year
  Sex: Male

DRUGS (2)
  1. TEMOZOLOMIDE. [Suspect]
     Active Substance: TEMOZOLOMIDE
     Indication: SECRETORY ADENOMA OF PITUITARY
     Dosage: 200 MG/M2, FIVE DAYS,EVERY 28 DAYS
     Route: 048
  2. SOMATOSTATIN [Concomitant]
     Active Substance: SOMATOSTATIN
     Indication: SECRETORY ADENOMA OF PITUITARY
     Dosage: 30 MG/28 DAYS

REACTIONS (2)
  - Neoplasm progression [Not Recovered/Not Resolved]
  - Therapeutic response decreased [Not Recovered/Not Resolved]
